FAERS Safety Report 4703165-7 (Version None)
Quarter: 2005Q2

REPORT INFORMATION
  Report Type: 
  Country: None (occurrence: None)
  Receive Date: 20050629
  Receipt Date: 20050623
  Transmission Date: 20051028
  Serious: Yes (Hospitalization)
  Sender: FDA-Public Use
  Company Number: US-BRISTOL-MYERS SQUIBB COMPANY-13014493

PATIENT
  Age: 52 Year
  Sex: Male
  Weight: 82 kg

DRUGS (11)
  1. CETUXIMAB [Suspect]
     Indication: NON-SMALL CELL LUNG CANCER
     Route: 042
     Dates: start: 20050623, end: 20050623
  2. CARBOPLATIN [Suspect]
     Indication: NON-SMALL CELL LUNG CANCER
     Route: 042
     Dates: start: 20050616, end: 20050616
  3. DOCETAXEL [Suspect]
     Indication: NON-SMALL CELL LUNG CANCER
     Route: 042
     Dates: start: 20050616, end: 20050616
  4. ADALAT [Concomitant]
     Indication: HYPERTENSION
     Route: 048
     Dates: end: 20050623
  5. ALBUTEROL [Concomitant]
     Indication: CHRONIC OBSTRUCTIVE PULMONARY DISEASE
     Route: 055
  6. ATIVAN [Concomitant]
     Indication: INSOMNIA
  7. COMPAZINE [Concomitant]
     Indication: NAUSEA
     Dosage: ADMINISTERED EVERY 4-6 HOURS PRN.
  8. GLYBURIDE [Concomitant]
     Indication: HYPERGLYCAEMIA
  9. LISINOPRIL [Concomitant]
     Indication: HYPERTENSION
     Route: 048
     Dates: end: 20050623
  10. POTASSIUM CHLORIDE [Concomitant]
     Indication: HYPOKALAEMIA
  11. PREVACID [Concomitant]
     Indication: GASTROOESOPHAGEAL REFLUX DISEASE

REACTIONS (2)
  - DEHYDRATION [None]
  - HYPOTENSION [None]
